FAERS Safety Report 18440002 (Version 3)
Quarter: 2021Q1

REPORT INFORMATION
  Report Type: Spontaneous
  Country: CA (occurrence: CA)
  Receive Date: 20201029
  Receipt Date: 20210107
  Transmission Date: 20210419
  Serious: Yes (Hospitalization, Other)
  Sender: FDA-Public Use
  Company Number: CA-BRISTOL-MYERS SQUIBB COMPANY-BMS-2020-089354

PATIENT
  Age: 44 Year
  Sex: Female

DRUGS (3)
  1. FERROUS SULFATE. [Concomitant]
     Active Substance: FERROUS SULFATE
     Indication: WEIGHT DECREASED
     Dosage: UNK
     Route: 065
     Dates: start: 20201022
  2. ELIQUIS [Suspect]
     Active Substance: APIXABAN
     Dosage: 5 MILLIGRAM, BID
     Route: 048
     Dates: start: 20201014
  3. ELIQUIS [Suspect]
     Active Substance: APIXABAN
     Indication: PULMONARY EMBOLISM
     Dosage: 10 MILLIGRAM, BID
     Route: 048
     Dates: start: 20200916, end: 20200922

REACTIONS (2)
  - Sepsis [Recovered/Resolved]
  - Weight decreased [Unknown]

NARRATIVE: CASE EVENT DATE: 20200916
